FAERS Safety Report 20714648 (Version 1)
Quarter: 2022Q2

REPORT INFORMATION
  Report Type: Spontaneous
  Country: US (occurrence: None)
  Receive Date: 20220415
  Receipt Date: 20220415
  Transmission Date: 20220721
  Serious: Yes (Death)
  Sender: FDA-Public Use
  Company Number: None

PATIENT
  Sex: Male
  Weight: 127 kg

DRUGS (6)
  1. ONCASPAR [Suspect]
     Active Substance: PEGASPARGASE
     Indication: Burning sensation
     Dates: start: 20220116, end: 20220408
  2. CYCLOPHOSPHAMIDE [Suspect]
     Active Substance: CYCLOPHOSPHAMIDE
     Dates: start: 20220116, end: 20220326
  3. CYTARABINE [Suspect]
     Active Substance: CYTARABINE
     Dates: start: 20220116, end: 20220405
  4. MERCAPTOPURINE [Suspect]
     Active Substance: MERCAPTOPURINE
     Dates: start: 20220116, end: 20220408
  5. METHOTREXATE [Suspect]
     Active Substance: METHOTREXATE
     Dates: start: 20220116, end: 20220324
  6. VINCRISTINE [Suspect]
     Active Substance: VINCRISTINE
     Indication: Peripheral sensory neuropathy
     Dates: start: 20220116, end: 20220311

REACTIONS (6)
  - Peripheral sensory neuropathy [None]
  - Unresponsive to stimuli [None]
  - Cardio-respiratory arrest [None]
  - Bradycardia [None]
  - Pain in extremity [None]
  - Shock haemorrhagic [None]

NARRATIVE: CASE EVENT DATE: 20220408
